FAERS Safety Report 11661748 (Version 2)
Quarter: 2015Q4

REPORT INFORMATION
  Report Type: Spontaneous
  Country: US (occurrence: US)
  Receive Date: 20151026
  Receipt Date: 20151027
  Transmission Date: 20160304
  Serious: No
  Sender: FDA-Public Use
  Company Number: US-BAUSCH-BL-2015-014104

PATIENT
  Age: 5 Year

DRUGS (5)
  1. ZONEGRAN [Suspect]
     Active Substance: ZONISAMIDE
     Indication: EPILEPSY
  2. KEPPRA [Suspect]
     Active Substance: LEVETIRACETAM
     Indication: EPILEPSY
  3. TOPAMAX [Suspect]
     Active Substance: TOPIRAMATE
     Indication: EPILEPSY
  4. ATIVAN [Suspect]
     Active Substance: LORAZEPAM
     Indication: AUTISM
  5. ATIVAN [Suspect]
     Active Substance: LORAZEPAM
     Indication: EPILEPSY

REACTIONS (2)
  - Drug ineffective [Unknown]
  - Off label use [Unknown]
